FAERS Safety Report 24002035 (Version 2)
Quarter: 2024Q3

REPORT INFORMATION
  Report Type: Report from Study
  Country: CA (occurrence: CA)
  Receive Date: 20240622
  Receipt Date: 20240916
  Transmission Date: 20241017
  Serious: Yes (Other)
  Sender: SAMSUNG BIOEPIS
  Company Number: CA-SAMSUNG BIOEPIS-SB-2024-09061

PATIENT
  Sex: Male

DRUGS (2)
  1. RENFLEXIS [Suspect]
     Active Substance: INFLIXIMAB-ABDA
     Indication: Crohn^s disease
     Dosage: 13 MG/KG
     Route: 042
     Dates: start: 20240223
  2. RENFLEXIS [Suspect]
     Active Substance: INFLIXIMAB-ABDA
     Dosage: 13 MG/KG
     Route: 042
     Dates: start: 20240223

REACTIONS (4)
  - Haematochezia [Unknown]
  - Frequent bowel movements [Unknown]
  - Off label use [Unknown]
  - Prescribed overdose [Recovered/Resolved]
